FAERS Safety Report 7928856-6 (Version None)
Quarter: 2011Q4

REPORT INFORMATION
  Report Type: 
  Country: None (occurrence: None)
  Receive Date: 20111118
  Receipt Date: 20111114
  Transmission Date: 20120403
  Serious: Yes (Hospitalization)
  Sender: FDA-Public Use
  Company Number: US-CELGENEUS-163-21880-11112148

PATIENT
  Sex: Male

DRUGS (9)
  1. REVLIMID [Suspect]
     Indication: MYELODYSPLASTIC SYNDROME
     Dosage: 5 MILLIGRAM
     Route: 048
     Dates: start: 20110807
  2. PREVACID [Concomitant]
     Route: 065
  3. METFORMIN HCL [Concomitant]
     Route: 065
  4. VITAMIN B-12 [Concomitant]
     Route: 065
  5. HUMALOG [Concomitant]
     Route: 065
  6. PROSCAR [Concomitant]
     Route: 065
  7. VITAMIN B1 TAB [Concomitant]
     Route: 065
  8. LANTUS [Concomitant]
     Route: 065
  9. DEXAMETHASONE [Concomitant]
     Route: 065

REACTIONS (2)
  - LYMPHADENOPATHY [None]
  - STOMATITIS [None]
